FAERS Safety Report 8277811-8 (Version None)
Quarter: 2012Q2

REPORT INFORMATION
  Report Type: 
  Country: None (occurrence: None)
  Receive Date: 20120412
  Receipt Date: 20120328
  Transmission Date: 20120825
  Serious: Yes (Hospitalization)
  Sender: FDA-Public Use
  Company Number: US-ENDO PHARMACEUTICALS INC.-OPIR20120037

PATIENT
  Sex: Female
  Weight: 59.02 kg

DRUGS (5)
  1. OPANA [Suspect]
     Indication: BACK PAIN
     Route: 048
     Dates: start: 20080101, end: 20120301
  2. OXYMORPHONE HYDROCHLORIDE [Suspect]
     Indication: BACK PAIN
     Route: 048
  3. MORPHINE SULFATE [Concomitant]
     Indication: PAIN
     Route: 048
     Dates: start: 20020101
  4. OPANA [Suspect]
     Indication: DEPRESSION
  5. OXYMORPHONE HYDROCHLORIDE [Suspect]
     Indication: DEPRESSION

REACTIONS (10)
  - VOMITING [None]
  - SUICIDE ATTEMPT [None]
  - DRUG WITHDRAWAL SYNDROME [None]
  - PRURITUS [None]
  - TREMOR [None]
  - EUPHORIC MOOD [None]
  - FURUNCLE [None]
  - HALLUCINATION [None]
  - PERSONALITY CHANGE [None]
  - THINKING ABNORMAL [None]
